FAERS Safety Report 6954981-2 (Version None)
Quarter: 2010Q3

REPORT INFORMATION
  Report Type: 
  Country: None (occurrence: None)
  Receive Date: 20100830
  Receipt Date: 20100819
  Transmission Date: 20110219
  Serious: Yes (Other)
  Sender: FDA-Public Use
  Company Number: BE-SOLVAY-00210005142

PATIENT
  Age: 25777 Day
  Sex: Male
  Weight: 78 kg

DRUGS (1)
  1. COVERSYL 4MG NOS [Suspect]
     Indication: HYPERTENSION
     Dosage: DAILY DOSE: 4 MILLIGRAM(S)
     Route: 048
     Dates: start: 20071201, end: 20100501

REACTIONS (2)
  - COUGH [None]
  - PNEUMONIA [None]
